FAERS Safety Report 22640547 (Version 1)
Quarter: 2023Q2

REPORT INFORMATION
  Report Type: Spontaneous
  Country: DE (occurrence: DE)
  Receive Date: 20230626
  Receipt Date: 20230626
  Transmission Date: 20230721
  Serious: Yes (Other)
  Sender: FDA-Public Use
  Company Number: DE-TEVA-2023-DE-2898164

PATIENT
  Age: 46 Year
  Sex: Female

DRUGS (2)
  1. CIMETIDINE HYDROCHLORIDE [Suspect]
     Active Substance: CIMETIDINE HYDROCHLORIDE
     Indication: Product used for unknown indication
     Dosage: FORM STRENGTH: 200MG/2ML
     Route: 065
     Dates: start: 20230605
  2. DIMETHINDENE MALEATE [Suspect]
     Active Substance: DIMETHINDENE MALEATE
     Indication: Product used for unknown indication
     Dosage: FORM STRENGTH: 1MG/ML
     Route: 065
     Dates: start: 20230605

REACTIONS (13)
  - Blood pressure decreased [Recovering/Resolving]
  - Dysgeusia [Unknown]
  - Parosmia [Unknown]
  - Dizziness [Unknown]
  - Tinnitus [Unknown]
  - Nausea [Unknown]
  - Chills [Unknown]
  - Feeling cold [Unknown]
  - Somnolence [Not Recovered/Not Resolved]
  - Fatigue [Not Recovered/Not Resolved]
  - Malaise [Unknown]
  - Hypersensitivity [Unknown]
  - Adverse event [Not Recovered/Not Resolved]

NARRATIVE: CASE EVENT DATE: 20230601
